FAERS Safety Report 10841193 (Version 1)
Quarter: 2015Q1

REPORT INFORMATION
  Report Type: Report from Study
  Country: US (occurrence: US)
  Receive Date: 20150220
  Receipt Date: 20150220
  Transmission Date: 20150721
  Serious: No
  Sender: FDA-Public Use
  Company Number: US-ABBVIE-14P-163-1237007-00

PATIENT
  Sex: Female
  Weight: 49.94 kg

DRUGS (2)
  1. HUMIRA [Suspect]
     Active Substance: ADALIMUMAB
     Indication: PSORIASIS
     Dates: end: 201403
  2. HUMIRA [Suspect]
     Active Substance: ADALIMUMAB
     Dates: start: 20140510

REACTIONS (4)
  - Nasal congestion [Unknown]
  - Psoriasis [Unknown]
  - Psoriatic arthropathy [Unknown]
  - Influenza like illness [Unknown]
